FAERS Safety Report 6713547-X (Version None)
Quarter: 2010Q2

REPORT INFORMATION
  Report Type: 
  Country: None (occurrence: None)
  Receive Date: 20100506
  Receipt Date: 20100427
  Transmission Date: 20101027
  Serious: Yes (Other)
  Sender: FDA-Public Use
  Company Number: US-SANOFI-AVENTIS-2010SA024835

PATIENT
  Age: 66 Year
  Sex: Female

DRUGS (7)
  1. LANTUS [Suspect]
     Indication: TYPE 2 DIABETES MELLITUS
     Dosage: 60 UNITS IN AM AND 60 UNITS IN PM
     Route: 058
  2. OPTICLICK [Suspect]
     Indication: TYPE 2 DIABETES MELLITUS
  3. OPTICLICK [Suspect]
  4. ALL OTHER THERAPEUTIC PRODUCTS [Suspect]
     Route: 065
  5. HUMALOG [Suspect]
     Dosage: WITH MEALS PER SLIDING SCALE
  6. CHOLESTEROL [Concomitant]
  7. ANTIHYPERTENSIVES [Concomitant]

REACTIONS (4)
  - BLINDNESS [None]
  - CEREBROVASCULAR ACCIDENT [None]
  - HYPERGLYCAEMIA [None]
  - INTRAOCULAR PRESSURE INCREASED [None]
